FAERS Safety Report 24439824 (Version 1)
Quarter: 2024Q4

REPORT INFORMATION
  Report Type: Spontaneous
  Country: ES (occurrence: ES)
  Receive Date: 20241015
  Receipt Date: 20241015
  Transmission Date: 20250114
  Serious: Yes (Other)
  Sender: MERCK
  Company Number: None

PATIENT
  Age: 57 Year
  Sex: Female
  Weight: 56 kg

DRUGS (3)
  1. PEMBROLIZUMAB [Suspect]
     Active Substance: PEMBROLIZUMAB
     Indication: Lung adenocarcinoma stage IV
     Dosage: 1ST CYCLE OF CARBOPLATIN (AUC 4, 458 MG) + PEMETREXED (495 MG) + PEMBROLIZUMAB (200 MG)
     Route: 042
     Dates: start: 20230918
  2. CARBOPLATIN [Concomitant]
     Active Substance: CARBOPLATIN
     Indication: Lung adenocarcinoma stage IV
     Dosage: UNK
  3. PEMETREXED [Concomitant]
     Active Substance: PEMETREXED
     Indication: Lung adenocarcinoma stage IV
     Dosage: UNK

REACTIONS (2)
  - Aspartate aminotransferase [Recovering/Resolving]
  - Immune-mediated hypothyroidism [Recovering/Resolving]

NARRATIVE: CASE EVENT DATE: 20230921
